FAERS Safety Report 18500189 (Version 1)
Quarter: 2020Q4

REPORT INFORMATION
  Report Type: Spontaneous
  Country: CN (occurrence: CN)
  Receive Date: 20201113
  Receipt Date: 20201113
  Transmission Date: 20210114
  Serious: Yes (Hospitalization, Other)
  Sender: FDA-Public Use
  Company Number: CN-MSNLABS-2020MSNLIT00404

PATIENT
  Age: 56 Year
  Sex: Male

DRUGS (5)
  1. MOXIFLOXACIN HYDROCHLORIDE TABLETS 400 MG [Suspect]
     Active Substance: MOXIFLOXACIN HYDROCHLORIDE
     Route: 042
  2. AZITHROMYCIN ANHYDROUS. [Suspect]
     Active Substance: AZITHROMYCIN ANHYDROUS
     Indication: PNEUMONIA LEGIONELLA
     Route: 048
  3. MOXIFLOXACIN HYDROCHLORIDE TABLETS 400 MG [Suspect]
     Active Substance: MOXIFLOXACIN HYDROCHLORIDE
     Indication: PNEUMONIA LEGIONELLA
     Route: 042
  4. MOXIFLOXACIN HYDROCHLORIDE TABLETS 400 MG [Suspect]
     Active Substance: MOXIFLOXACIN HYDROCHLORIDE
     Route: 048
  5. DEPAKIN [Interacting]
     Active Substance: VALPROATE SODIUM
     Indication: EPILEPSY
     Route: 065

REACTIONS (2)
  - Electrocardiogram QT prolonged [Unknown]
  - Epilepsy [Not Recovered/Not Resolved]
